FAERS Safety Report 16886475 (Version 3)
Quarter: 2019Q4

REPORT INFORMATION
  Report Type: Report from Study
  Country: US (occurrence: US)
  Receive Date: 20191004
  Receipt Date: 20191223
  Transmission Date: 20200122
  Serious: Yes (Death, Hospitalization, Other)
  Sender: FDA-Public Use
  Company Number: US-B.I. PHARMACEUTICALS,INC./RIDGEFIELD-2018-BI-054195

PATIENT
  Age: 86 Year
  Sex: Male

DRUGS (3)
  1. OFEV [Suspect]
     Active Substance: NINTEDANIB
     Route: 048
     Dates: start: 20190305
  2. OFEV [Suspect]
     Active Substance: NINTEDANIB
     Indication: IDIOPATHIC PULMONARY FIBROSIS
     Route: 048
     Dates: start: 20181016, end: 20190218
  3. OFEV [Suspect]
     Active Substance: NINTEDANIB
     Route: 048

REACTIONS (37)
  - Micturition urgency [Unknown]
  - Abdominal pain upper [Unknown]
  - Gastrointestinal disorder [Not Recovered/Not Resolved]
  - Dysuria [Unknown]
  - Automatic bladder [Not Recovered/Not Resolved]
  - Nasopharyngitis [Not Recovered/Not Resolved]
  - Basal cell carcinoma [Unknown]
  - Skin cancer [Unknown]
  - Haemoglobin decreased [Unknown]
  - Constipation [Not Recovered/Not Resolved]
  - Fatigue [Not Recovered/Not Resolved]
  - Sepsis [Unknown]
  - Prostatic disorder [Unknown]
  - Dyspnoea [Unknown]
  - Weight decreased [Not Recovered/Not Resolved]
  - Diplopia [Not Recovered/Not Resolved]
  - Dizziness [Not Recovered/Not Resolved]
  - Constipation [Recovered/Resolved]
  - Cough [Not Recovered/Not Resolved]
  - Pollakiuria [Unknown]
  - Bladder cancer recurrent [Not Recovered/Not Resolved]
  - Flatulence [Recovering/Resolving]
  - Memory impairment [Not Recovered/Not Resolved]
  - Hypotension [Not Recovered/Not Resolved]
  - Death [Fatal]
  - Vomiting [Unknown]
  - Automatic bladder [Recovered/Resolved]
  - Asthenia [Unknown]
  - Decreased appetite [Unknown]
  - Blood iron decreased [Not Recovered/Not Resolved]
  - Pain [Unknown]
  - Flatulence [Recovered/Resolved]
  - Fatigue [Unknown]
  - Arthralgia [Not Recovered/Not Resolved]
  - Gastrointestinal motility disorder [Not Recovered/Not Resolved]
  - Diarrhoea [Not Recovered/Not Resolved]
  - Urinary tract infection [Not Recovered/Not Resolved]

NARRATIVE: CASE EVENT DATE: 20191112
